FAERS Safety Report 9529167 (Version 1)
Quarter: 2013Q2

REPORT INFORMATION
  Report Type: Spontaneous
  Country: US (occurrence: None)
  Receive Date: 20130401
  Receipt Date: 20130401
  Transmission Date: 20140414
  Serious: Yes (Other)
  Sender: FDA-Public Use
  Company Number: PHEH2013US001344

PATIENT
  Age: 87 Year
  Sex: Male

DRUGS (1)
  1. EXELON PATCH (RIVASTIGMINE) TRANS-THERAPEUTIC-SYSTEM [Suspect]
     Indication: DEMENTIA ALZHEIMER^S TYPE
     Dosage: 9.5 MG/ 24HRS, TRANSDERMAL
     Route: 062

REACTIONS (1)
  - Oesophageal haemorrhage [None]
